FAERS Safety Report 5167983-6 (Version None)
Quarter: 2006Q4

REPORT INFORMATION
  Report Type: 
  Country: None (occurrence: None)
  Receive Date: 20061208
  Receipt Date: 20051227
  Transmission Date: 20070319
  Serious: No
  Sender: FDA-Public Use
  Company Number: US-GLAXOSMITHKLINE-A0587029A

PATIENT
  Age: 70 Year
  Sex: Male

DRUGS (7)
  1. AVANDAMET [Suspect]
     Dosage: 1TAB TWICE PER DAY
     Route: 048
  2. VITAMIN A [Concomitant]
  3. ASCORBIC ACID [Concomitant]
  4. VITAMIN E [Concomitant]
  5. ASPIRIN [Concomitant]
  6. LISINOPRIL [Concomitant]
  7. CRESTOR [Concomitant]

REACTIONS (1)
  - DYSPNOEA [None]
